FAERS Safety Report 5103829-X (Version None)
Quarter: 2006Q3

REPORT INFORMATION
  Report Type: 
  Country: None (occurrence: None)
  Receive Date: 20060913
  Receipt Date: 20060421
  Transmission Date: 20061208
  Serious: Yes (Hospitalization, Other)
  Sender: FDA-Public Use
  Company Number: US-SANOFI-SYNTHELABO-F03200600085

PATIENT
  Age: 729 Month
  Sex: Male

DRUGS (10)
  1. OXALIPLATIN [Suspect]
     Indication: ADENOCARCINOMA PANCREAS
     Route: 042
     Dates: start: 20060315, end: 20060315
  2. AVASTIN [Suspect]
     Indication: ADENOCARCINOMA PANCREAS
     Route: 042
     Dates: start: 20060117, end: 20060117
  3. GEMCITABINE [Suspect]
     Indication: ADENOCARCINOMA PANCREAS
     Route: 042
     Dates: start: 20060314, end: 20060314
  4. BENADRYL [Concomitant]
     Dosage: UNK
     Route: 065
  5. ACRIVASTINE [Concomitant]
     Dosage: UNK
     Route: 065
  6. AMMONIUM CHLORIDE [Concomitant]
     Dosage: UNK
     Route: 065
  7. CAMPHOR [Concomitant]
     Dosage: UNK
     Route: 065
  8. MENTHOL [Concomitant]
     Dosage: UNK
     Route: 065
  9. SODIUM CITRATE [Concomitant]
     Dosage: UNK
     Route: 065
  10. ZINC OXIDE [Concomitant]
     Dosage: UNK
     Route: 065

REACTIONS (7)
  - BLOOD PRESSURE SYSTOLIC INCREASED [None]
  - CARDIO-RESPIRATORY ARREST [None]
  - EYE ROLLING [None]
  - FLUSHING [None]
  - HYPERSENSITIVITY [None]
  - LOSS OF CONSCIOUSNESS [None]
  - PROTEINURIA [None]
